FAERS Safety Report 16910567 (Version 1)
Quarter: 2019Q4

REPORT INFORMATION
  Report Type: Spontaneous
  Country: US (occurrence: US)
  Receive Date: 20191011
  Receipt Date: 20191011
  Transmission Date: 20200122
  Serious: No
  Sender: FDA-Public Use
  Company Number: US-JAZZ-JPI-P-022774

PATIENT
  Age: 46 Year
  Sex: Female
  Weight: 51.36 kg

DRUGS (5)
  1. XYREM [Suspect]
     Active Substance: SODIUM OXYBATE
     Indication: NARCOLEPSY
     Route: 048
     Dates: start: 20111215
  2. EFFEXOR [Concomitant]
     Active Substance: VENLAFAXINE HYDROCHLORIDE
  3. XYREM [Suspect]
     Active Substance: SODIUM OXYBATE
     Dosage: SINGLE (4 GM FIRST DOSE/3.75 GM SECOND DOSE)
     Route: 048
     Dates: start: 20120416
  4. XYREM [Suspect]
     Active Substance: SODIUM OXYBATE
     Dosage: UNKNOWN, SINGLE
     Route: 048
  5. LISINOPRIL. [Suspect]
     Active Substance: LISINOPRIL
     Indication: BLOOD PRESSURE MEASUREMENT

REACTIONS (8)
  - Hypertension [Recovering/Resolving]
  - Anxiety [Unknown]
  - Depression [Unknown]
  - Alopecia [Not Recovered/Not Resolved]
  - Feeling jittery [Unknown]
  - Psychomotor hyperactivity [Unknown]
  - Weight decreased [Recovered/Resolved]
  - Dizziness [Unknown]

NARRATIVE: CASE EVENT DATE: 201112
